FAERS Safety Report 4491781-X (Version None)
Quarter: 2004Q4

REPORT INFORMATION
  Report Type: 
  Country: None (occurrence: None)
  Receive Date: 20041101
  Receipt Date: 20040910
  Transmission Date: 20050328
  Serious: Yes (Death, Life-Threatening)
  Sender: FDA-Public Use
  Company Number: 2004-00510

PATIENT
  Age: 76 Year
  Sex: Male
  Weight: 64 kg

DRUGS (15)
  1. VELCADE [Suspect]
     Indication: MULTIPLE MYELOMA
     Dosage: 1.50 MG, INTRAVENOUS
     Route: 042
     Dates: start: 20040906, end: 20040910
  2. DEXAMETHASONE [Suspect]
     Indication: MULTIPLE MYELOMA
  3. KARVEA             (IRBESARTAN) [Concomitant]
  4. CARVEDILOL [Concomitant]
  5. CORVATON (MOLSIDOMINE) [Concomitant]
  6. ISMO [Concomitant]
  7. LEVOTHYROXINE SODIUM [Concomitant]
  8. TROMCARDIN (MAGNESIUM ASPARTATE, ASPARTATE POTASSIUM) [Concomitant]
  9. IDEOS (COLECALCIFEROL, CALCIUM CARBONATE) [Concomitant]
  10. ASPIRIN [Concomitant]
  11. UNAT (TORASEMIDE) [Concomitant]
  12. KALINOR (POTASSIUM CHLORIDE) [Concomitant]
  13. BONDRONAT (IBANDRONIC ACID) [Concomitant]
  14. CLORAZEPATE DIPOTASSIUM [Concomitant]
  15. ISOSORBIDE DINITRATE [Concomitant]

REACTIONS (4)
  - ARRHYTHMIA [None]
  - DYSPNOEA [None]
  - FOAMING AT MOUTH [None]
  - PULMONARY OEDEMA [None]
